FAERS Safety Report 11750080 (Version 1)
Quarter: 2015Q4

REPORT INFORMATION
  Report Type: Report from Study
  Country: CA (occurrence: CA)
  Receive Date: 20151118
  Receipt Date: 20151118
  Transmission Date: 20160304
  Serious: Yes (Hospitalization)
  Sender: FDA-Public Use
  Company Number: CA-BIOGENIDEC-2015BI150462

PATIENT
  Age: 26 Year
  Sex: Female

DRUGS (1)
  1. AVONEX [Suspect]
     Active Substance: INTERFERON BETA-1A
     Indication: RELAPSING-REMITTING MULTIPLE SCLEROSIS
     Route: 030
     Dates: start: 20150922

REACTIONS (5)
  - Multiple sclerosis relapse [Unknown]
  - Central nervous system lesion [Unknown]
  - Labyrinthitis [Unknown]
  - Malaise [Unknown]
  - Vestibular neuronitis [Unknown]

NARRATIVE: CASE EVENT DATE: 20151105
